FAERS Safety Report 5810126-3 (Version None)
Quarter: 2008Q3

REPORT INFORMATION
  Report Type: 
  Country: None (occurrence: None)
  Receive Date: 20080715
  Receipt Date: 20070814
  Transmission Date: 20090109
  Serious: No
  Sender: FDA-Public Use
  Company Number: A0661056A

PATIENT
  Age: 50 Year
  Sex: Male
  Weight: 105.6 kg

DRUGS (1)
  1. IMITREX [Suspect]
     Indication: MIGRAINE
     Route: 048

REACTIONS (3)
  - EYELID OEDEMA [None]
  - LIP SWELLING [None]
  - OEDEMA PERIPHERAL [None]
